FAERS Safety Report 16162227 (Version 3)
Quarter: 2019Q2

REPORT INFORMATION
  Report Type: Spontaneous
  Country: DE (occurrence: DE)
  Receive Date: 20190405
  Receipt Date: 20190430
  Transmission Date: 20190711
  Serious: Yes (Other)
  Sender: FDA-Public Use
  Company Number: DE-AUROBINDO-AUR-APL-2019-018400

PATIENT

DRUGS (2)
  1. TERBINAFIN PUREN 250 MG TABLET [Suspect]
     Active Substance: TERBINAFINE
     Indication: ONYCHOMYCOSIS
     Dosage: 250 MILLIGRAM
     Route: 048
     Dates: start: 20181124, end: 20181130
  2. TERBINAFIN PUREN 250 MG TABLET [Suspect]
     Active Substance: TERBINAFINE
     Dosage: 125 MILLIGRAM
     Route: 048
     Dates: start: 20181201, end: 20190326

REACTIONS (2)
  - Arthralgia [Recovering/Resolving]
  - Impaired work ability [Recovered/Resolved]

NARRATIVE: CASE EVENT DATE: 201902
